FAERS Safety Report 5003670-2 (Version None)
Quarter: 2006Q2

REPORT INFORMATION
  Report Type: 
  Country: None (occurrence: None)
  Receive Date: 20060516
  Receipt Date: 20050218
  Transmission Date: 20061013
  Serious: Yes (Hospitalization, Other)
  Sender: FDA-Public Use
  Company Number: US-MERCK-0502USA02968

PATIENT
  Age: 74 Year
  Sex: Male
  Weight: 95 kg

DRUGS (2)
  1. VIOXX [Suspect]
     Indication: ARTHRITIS
     Route: 048
     Dates: start: 20000418, end: 20030903
  2. VIOXX [Suspect]
     Route: 048
     Dates: start: 20000418, end: 20030903

REACTIONS (10)
  - ADENOMA BENIGN [None]
  - GASTRITIS [None]
  - INJURY [None]
  - KNEE ARTHROPLASTY [None]
  - LACUNAR INFARCTION [None]
  - MYOCARDIAL INFARCTION [None]
  - OCCULT BLOOD POSITIVE [None]
  - ROTATOR CUFF SYNDROME [None]
  - SURGERY [None]
  - THROMBOCYTOPENIA [None]
